FAERS Safety Report 9775157 (Version 1)
Quarter: 2013Q4

REPORT INFORMATION
  Report Type: Spontaneous
  Country: US (occurrence: None)
  Receive Date: 20131219
  Receipt Date: 20131219
  Transmission Date: 20140711
  Serious: Yes (Hospitalization)
  Sender: FDA-Public Use
  Company Number: None

PATIENT
  Age: 46 Year
  Sex: Male
  Weight: 90.72 kg

DRUGS (2)
  1. LISINOPRIL [Suspect]
     Indication: RENAL DISORDER
     Route: 048
     Dates: start: 20131113, end: 20131113
  2. LISINOPRIL [Suspect]
     Indication: PROPHYLAXIS
     Route: 048
     Dates: start: 20131113, end: 20131113

REACTIONS (4)
  - Headache [None]
  - Hypoaesthesia [None]
  - Paraesthesia [None]
  - Dizziness postural [None]
